FAERS Safety Report 15423330 (Version 2)
Quarter: 2018Q4

REPORT INFORMATION
  Report Type: Report from Study
  Country: IT (occurrence: IT)
  Receive Date: 20180925
  Receipt Date: 20181026
  Transmission Date: 20190204
  Serious: Yes (Hospitalization)
  Sender: FDA-Public Use
  Company Number: IT-AUROBINDO-AUR-APL-2018-047012

PATIENT
  Age: 10 Year
  Sex: Male

DRUGS (2)
  1. MORNIFLUMATE [Suspect]
     Active Substance: MORNIFLUMATE
     Indication: PHARYNGITIS
     Dosage: UNK
     Route: 065
  2. AMOXICILLIN. [Suspect]
     Active Substance: AMOXICILLIN
     Indication: TONSILLITIS
     Dosage: UNK
     Route: 065

REACTIONS (1)
  - Vasculitis [Unknown]
